FAERS Safety Report 9701478 (Version 1)
Quarter: 2013Q4

REPORT INFORMATION
  Report Type: Spontaneous
  Country: CL (occurrence: CL)
  Receive Date: 20131121
  Receipt Date: 20131121
  Transmission Date: 20140711
  Serious: Yes (Other)
  Sender: FDA-Public Use
  Company Number: CL-PFIZER INC-2013329286

PATIENT
  Sex: Female

DRUGS (2)
  1. DETRUSITOL [Suspect]
     Dosage: UNK
     Dates: start: 2012
  2. EUTIROX [Concomitant]
     Dosage: UNK

REACTIONS (3)
  - Uterine prolapse [Unknown]
  - Ovarian prolapse [Unknown]
  - Drug ineffective [Unknown]
